FAERS Safety Report 6176173-X (Version None)
Quarter: 2009Q2

REPORT INFORMATION
  Report Type: 
  Country: None (occurrence: None)
  Receive Date: 20090501
  Receipt Date: 20090424
  Transmission Date: 20091009
  Serious: Yes (Other)
  Sender: FDA-Public Use
  Company Number: FI-JNJFOC-20090405986

PATIENT
  Age: 11 Year
  Sex: Male

DRUGS (4)
  1. CONCERTA [Suspect]
     Route: 048
  2. CONCERTA [Suspect]
     Indication: ATTENTION DEFICIT/HYPERACTIVITY DISORDER
     Route: 048
  3. FLUTICASONE PROPIONATE [Concomitant]
     Route: 065
  4. VENTOLIN [Concomitant]
     Route: 065

REACTIONS (1)
  - GRANULOCYTOPENIA [None]
